FAERS Safety Report 19188716 (Version 2)
Quarter: 2022Q1

REPORT INFORMATION
  Report Type: Spontaneous
  Country: AU (occurrence: AU)
  Receive Date: 20210428
  Receipt Date: 20220117
  Transmission Date: 20220423
  Serious: Yes (Hospitalization, Other)
  Sender: FDA-Public Use
  Company Number: AU-PANPHARMAP-2021009490

PATIENT
  Age: 1 Year
  Sex: Male

DRUGS (10)
  1. MORPHINE [Suspect]
     Active Substance: MORPHINE
     Indication: Sedation
     Dosage: 10 MICROGRAM/KILOGRAM, EVERY ONE HOUR (DRIP)
     Route: 042
  2. MORPHINE [Suspect]
     Active Substance: MORPHINE
     Dosage: 20 MICROGRAM/KILOGRAM, EVERY ONE HOUR (DRIP)
     Route: 042
  3. MORPHINE [Suspect]
     Active Substance: MORPHINE
     Dosage: 20 MICROGRAM/KILOGRAM EVERY HOUR
     Route: 040
  4. TRAMADOL [Suspect]
     Active Substance: TRAMADOL
     Indication: Sedation
     Dosage: 20 MILLIGRAM (2 MILLIGRAM PER KILOGRAM) TOTAL
     Route: 042
  5. FENTANYL [Suspect]
     Active Substance: FENTANYL
     Indication: Sedation
     Dosage: 75 MICROGRAM, TOTAL , INTRAOPERATIVE
     Route: 042
  6. FENTANYL [Suspect]
     Active Substance: FENTANYL
     Dosage: 5 MICROGRAM, TOTAL , INTRAOPERATIVE
     Route: 042
  7. CEFAZOLIN [Concomitant]
     Active Substance: CEFAZOLIN
     Indication: Product used for unknown indication
     Dosage: 1 DOSAGE FORM, TOTAL
     Route: 065
  8. OXYGEN [Concomitant]
     Active Substance: OXYGEN
     Indication: Product used for unknown indication
     Dosage: 9 LITER, EVERY ONE MINUTE
     Route: 065
  9. ROPIVACAINE [Concomitant]
     Active Substance: ROPIVACAINE
     Indication: Product used for unknown indication
     Dosage: UNK
     Route: 065
  10. EPINEPHRINE [Concomitant]
     Active Substance: EPINEPHRINE
     Indication: Product used for unknown indication
     Dosage: UNK
     Route: 065

REACTIONS (7)
  - Sedation complication [Recovered/Resolved]
  - Aspiration [Recovered/Resolved]
  - Respiratory acidosis [Recovering/Resolving]
  - Metabolic acidosis [Recovering/Resolving]
  - Respiratory distress [Recovered/Resolved]
  - Condition aggravated [Recovered/Resolved]
  - Product communication issue [Unknown]
